FAERS Safety Report 5643014-6 (Version None)
Quarter: 2008Q1

REPORT INFORMATION
  Report Type: 
  Country: None (occurrence: None)
  Receive Date: 20080227
  Receipt Date: 20080227
  Transmission Date: 20080703
  Serious: Yes (Hospitalization)
  Sender: FDA-Public Use
  Company Number: None

PATIENT
  Age: 34 Year
  Sex: Female
  Weight: 78.0187 kg

DRUGS (2)
  1. ZITHROMAX [Suspect]
     Indication: BRONCHITIS
     Dosage: 500 MG ONE DOSE IV
     Route: 042
     Dates: start: 20080220, end: 20080220
  2. LEVAQUIN [Suspect]
     Dosage: 500 MG ONE DOSE IV
     Route: 042
     Dates: start: 20080220, end: 20080220

REACTIONS (2)
  - ERYTHEMA [None]
  - INJECTION SITE PRURITUS [None]
